FAERS Safety Report 21346139 (Version 1)
Quarter: 2022Q3

REPORT INFORMATION
  Report Type: Spontaneous
  Country: FR (occurrence: FR)
  Receive Date: 20220917
  Receipt Date: 20220917
  Transmission Date: 20221026
  Serious: Yes (Hospitalization, Other)
  Sender: FDA-Public Use
  Company Number: FR-AFSSAPS-MA20223621

PATIENT
  Age: 17 Year
  Sex: Male
  Weight: 65 kg

DRUGS (2)
  1. CIPROFLOXACIN [Suspect]
     Active Substance: CIPROFLOXACIN
     Indication: Osteomyelitis
     Dosage: 2 GRAM, TWICE A DAY
     Route: 048
     Dates: start: 20220801, end: 20220831
  2. CEFEPIME [Suspect]
     Active Substance: CEFEPIME HYDROCHLORIDE
     Indication: Osteomyelitis
     Dosage: 500 MILLIGRAM, 8TH HRLY
     Route: 048
     Dates: start: 20220801, end: 20220831

REACTIONS (1)
  - Agranulocytosis [Recovering/Resolving]

NARRATIVE: CASE EVENT DATE: 20220829
